FAERS Safety Report 7788072-8 (Version None)
Quarter: 2011Q3

REPORT INFORMATION
  Report Type: 
  Country: None (occurrence: None)
  Receive Date: 20110927
  Receipt Date: 20110922
  Transmission Date: 20111222
  Serious: Yes (Hospitalization)
  Sender: FDA-Public Use
  Company Number: SP04518

PATIENT
  Age: 50 Year
  Sex: Female

DRUGS (9)
  1. ZARZIO [Suspect]
     Dosage: 30 MU (30 MU, 1 IN 1 D)
     Dates: start: 20110703, end: 20110706
  2. UROMITEXAN [Concomitant]
  3. PRIMPERAN TAB [Concomitant]
  4. BETAPRED [Concomitant]
  5. COLAZAL [Suspect]
     Indication: PROCTITIS ULCERATIVE
     Dosage: 1500 MG (750 MG,2 IN 1 D),ORAL,  6 GM (3 GM,2 IN 1 D)
     Route: 048
     Dates: start: 20110601, end: 20110706
  6. COLAZAL [Suspect]
     Indication: PROCTITIS ULCERATIVE
     Dosage: 1500 MG (750 MG,2 IN 1 D),ORAL,  6 GM (3 GM,2 IN 1 D)
     Route: 048
     Dates: end: 20110601
  7. LYRICA [Concomitant]
  8. IFOSFAMIDE [Concomitant]
  9. DOXORUBICIN HCL [Concomitant]

REACTIONS (1)
  - FEBRILE NEUTROPENIA [None]
